FAERS Safety Report 22203890 (Version 2)
Quarter: 2023Q2

REPORT INFORMATION
  Report Type: Spontaneous
  Country: US (occurrence: US)
  Receive Date: 20230412
  Receipt Date: 20230420
  Transmission Date: 20230722
  Serious: Yes (Other)
  Sender: FDA-Public Use
  Company Number: US-MLMSERVICE-20230403-4200977-1

PATIENT
  Age: 47 Year
  Sex: Female

DRUGS (3)
  1. HEPARIN SODIUM [Suspect]
     Active Substance: HEPARIN SODIUM
     Indication: Cerebral venous thrombosis
     Dosage: INFUSION
  2. NATALIZUMAB [Concomitant]
     Active Substance: NATALIZUMAB
     Indication: Optic neuritis
     Dosage: UNK
  3. DIMETHYL FUMARATE [Concomitant]
     Active Substance: DIMETHYL FUMARATE
     Indication: Relapsing-remitting multiple sclerosis
     Dosage: UNK

REACTIONS (2)
  - Protein S increased [Unknown]
  - Coagulation factor VIII level increased [Unknown]
